FAERS Safety Report 9598897 (Version 1)
Quarter: 2013Q4

REPORT INFORMATION
  Report Type: Spontaneous
  Country: US (occurrence: US)
  Receive Date: 20131004
  Receipt Date: 20131004
  Transmission Date: 20140711
  Serious: No
  Sender: FDA-Public Use
  Company Number: US-AMGEN-USASP2013026396

PATIENT
  Age: 46 Year
  Sex: Female
  Weight: 108.84 kg

DRUGS (7)
  1. ENBREL [Suspect]
     Indication: PRODUCT USED FOR UNKNOWN INDICATION
     Dosage: 50 MG, QWK
     Route: 058
  2. FOLIC ACID [Concomitant]
     Dosage: 1 MG, UNK
     Route: 048
  3. METHOTREXATE [Concomitant]
     Dosage: 2.5 MG, UNK
     Route: 048
  4. PREDNISONE [Concomitant]
     Dosage: 1 MG, UNK
     Route: 048
  5. ZOLOFT [Concomitant]
     Dosage: 25 MG, UNK
     Route: 048
  6. VICODIN [Concomitant]
     Dosage: 5-500 MG
     Route: 048
  7. VITAMIN D                          /00107901/ [Concomitant]
     Dosage: 400 UNIT, UNK
     Route: 048

REACTIONS (2)
  - Pyrexia [Unknown]
  - Injection site pain [Unknown]
